FAERS Safety Report 14211016 (Version 2)
Quarter: 2017Q4

REPORT INFORMATION
  Report Type: Report from Study
  Country: TW (occurrence: TW)
  Receive Date: 20171121
  Receipt Date: 20171223
  Transmission Date: 20180321
  Serious: No
  Sender: FDA-Public Use
  Company Number: PHHY2015TW177320

PATIENT
  Age: 72 Year
  Sex: Male

DRUGS (2)
  1. ZOMETA [Suspect]
     Active Substance: ZOLEDRONIC ACID
     Indication: PLASMA CELL MYELOMA
     Dosage: 3.5 MG, UNK
     Route: 041
     Dates: start: 20111216, end: 20140725
  2. NORVASC [Concomitant]
     Active Substance: AMLODIPINE BESYLATE
     Indication: HYPERTENSION
     Dosage: 2 DF, UNK
     Route: 048
     Dates: start: 20140303, end: 20140403

REACTIONS (2)
  - Back pain [Recovered/Resolved]
  - Osteomyelitis chronic [Recovered/Resolved]

NARRATIVE: CASE EVENT DATE: 20140303
